FAERS Safety Report 25889697 (Version 1)
Quarter: 2025Q4

REPORT INFORMATION
  Report Type: Spontaneous
  Country: US (occurrence: US)
  Receive Date: 20251007
  Receipt Date: 20251007
  Transmission Date: 20260117
  Serious: Yes (Death, Hospitalization)
  Sender: MYLAN
  Company Number: US-MYLANLABS-2025M1084341

PATIENT
  Age: 76 Year
  Sex: Female

DRUGS (8)
  1. THIAMINE HYDROCHLORIDE [Suspect]
     Active Substance: THIAMINE HYDROCHLORIDE
     Indication: Wernicke^s encephalopathy
     Dosage: 500 MILLIGRAM; THREE TIMES DAILY
     Dates: start: 2025
  2. DEXAMETHASONE SODIUM PHOSPHATE [Suspect]
     Active Substance: DEXAMETHASONE SODIUM PHOSPHATE
     Indication: Immune effector cell-associated neurotoxicity syndrome
     Dosage: 10 MILLIGRAM, QD
     Dates: start: 2025
  3. ACYCLOVIR [Concomitant]
     Active Substance: ACYCLOVIR
     Indication: Evidence based treatment
     Dosage: 10 MILLIGRAM/KILOGRAM
  4. MOSUNETUZUMAB [Concomitant]
     Active Substance: MOSUNETUZUMAB
     Indication: Follicular lymphoma
     Dosage: 1 MILLIGRAM; CYCLE 1 DAY 1
     Dates: start: 202411
  5. MOSUNETUZUMAB [Concomitant]
     Active Substance: MOSUNETUZUMAB
     Dosage: 2 MILLIGRAM; CYCLE 1 DAY 8;
  6. MOSUNETUZUMAB [Concomitant]
     Active Substance: MOSUNETUZUMAB
     Dosage: 60 MILLIGRAM; CYCLE 1 DAY 15;
  7. MOSUNETUZUMAB [Concomitant]
     Active Substance: MOSUNETUZUMAB
     Dosage: 60 MILLIGRAM, Q3W; CYCLE 2 DAY 1;
  8. MOSUNETUZUMAB [Concomitant]
     Active Substance: MOSUNETUZUMAB
     Dosage: 30 MILLIGRAM, Q3W; CYCLE 3 DAY 1;

REACTIONS (1)
  - Drug ineffective [Fatal]

NARRATIVE: CASE EVENT DATE: 20250101
